FAERS Safety Report 5584800-0 (Version None)
Quarter: 2008Q1

REPORT INFORMATION
  Report Type: 
  Country: None (occurrence: None)
  Receive Date: 20080103
  Receipt Date: 20071219
  Transmission Date: 20080703
  Serious: Yes (Other)
  Sender: FDA-Public Use
  Company Number: CH-GDP-07403347

PATIENT
  Age: 58 Year
  Sex: Male

DRUGS (1)
  1. METVIXIA [Suspect]
     Indication: ACTINIC KERATOSIS
     Dosage: 1 DF TOTAL , TOPICAL
     Route: 061
     Dates: start: 20071024, end: 20071024

REACTIONS (3)
  - ERYTHEMA [None]
  - RASH PUSTULAR [None]
  - SKIN HYPERPIGMENTATION [None]
